FAERS Safety Report 9848175 (Version 2)
Quarter: 2014Q1

REPORT INFORMATION
  Report Type: Spontaneous
  Country: US (occurrence: US)
  Receive Date: 20140128
  Receipt Date: 20140314
  Transmission Date: 20141002
  Serious: No
  Sender: FDA-Public Use
  Company Number: US-PFIZER INC-2014021564

PATIENT
  Age: 84 Year
  Sex: Male

DRUGS (1)
  1. GLIPIZIDE XL [Suspect]
     Indication: DIABETES MELLITUS
     Dosage: 10 MG, 3X/DAY
     Dates: start: 201312

REACTIONS (1)
  - Drug ineffective [Unknown]
